FAERS Safety Report 7470953-6 (Version None)
Quarter: 2011Q2

REPORT INFORMATION
  Report Type: 
  Country: None (occurrence: None)
  Receive Date: 20110506
  Receipt Date: 20110506
  Transmission Date: 20111010
  Serious: No
  Sender: FDA-Public Use
  Company Number: None

PATIENT
  Sex: Female
  Weight: 60.1 kg

DRUGS (1)
  1. PACLITAXEL [Suspect]
     Indication: LUNG NEOPLASM MALIGNANT
     Dosage: 72MG WEEKLY INTRAVENOUS 041
     Route: 042
     Dates: start: 20101215, end: 20101228

REACTIONS (4)
  - FEELING HOT [None]
  - FLUSHING [None]
  - DYSPNOEA [None]
  - CHEST DISCOMFORT [None]
